FAERS Safety Report 20368693 (Version 1)
Quarter: 2022Q1

REPORT INFORMATION
  Report Type: Report from Study
  Country: IT (occurrence: IT)
  Receive Date: 20220124
  Receipt Date: 20220124
  Transmission Date: 20220423
  Serious: Yes (Hospitalization)
  Sender: FDA-Public Use
  Company Number: None

PATIENT
  Age: 84 Year
  Sex: Male

DRUGS (4)
  1. PROPAFENONE [Suspect]
     Active Substance: PROPAFENONE
     Indication: Arrhythmia
     Dosage: UNIT DOSE: 2 DOSAGE FORMS
     Route: 048
  2. ASPIRIN [Concomitant]
     Active Substance: ASPIRIN
  3. SINEMET [Concomitant]
     Active Substance: CARBIDOPA\LEVODOPA
     Dosage: STRENGTH : 100 MG + 25 MG
  4. NEUPRO [Concomitant]
     Active Substance: ROTIGOTINE
     Dosage: 2 MG/24 H

REACTIONS (3)
  - Cold sweat [Recovering/Resolving]
  - Bradycardia [Recovering/Resolving]
  - Gait inability [Recovering/Resolving]

NARRATIVE: CASE EVENT DATE: 20210404
